FAERS Safety Report 4512325-X (Version None)
Quarter: 2004Q4

REPORT INFORMATION
  Report Type: 
  Country: None (occurrence: None)
  Receive Date: 20041123
  Receipt Date: 20041108
  Transmission Date: 20050328
  Serious: Yes (Death, Disabling)
  Sender: FDA-Public Use
  Company Number: 2004AP05568

PATIENT
  Age: 78 Year
  Sex: Male

DRUGS (10)
  1. IRESSA [Suspect]
     Indication: LUNG ADENOCARCINOMA RECURRENT
     Dosage: 250 MG DAILY, PO
     Route: 048
     Dates: start: 20041004, end: 20041025
  2. IRESSA [Suspect]
     Indication: NON-SMALL CELL LUNG CANCER
     Dosage: 250 MG DAILY, PO
     Route: 048
     Dates: start: 20041004, end: 20041025
  3. LOXONIN [Concomitant]
  4. CYTOTEC [Concomitant]
  5. MS CONTIN [Concomitant]
  6. MAGNESIUM OXIDE [Concomitant]
  7. CISPLATIN [Concomitant]
  8. CARBOPLATIN [Concomitant]
  9. PACLITAXEL [Concomitant]
  10. GEMCITABINE [Concomitant]

REACTIONS (3)
  - CEREBRAL INFARCTION [None]
  - INTERSTITIAL LUNG DISEASE [None]
  - RESPIRATORY FAILURE [None]
